FAERS Safety Report 8055227-7 (Version None)
Quarter: 2011Q4

REPORT INFORMATION
  Report Type: 
  Country: None (occurrence: None)
  Receive Date: 20111219
  Receipt Date: 20101122
  Transmission Date: 20120403
  Serious: Yes (Hospitalization, Other)
  Sender: FDA-Public Use
  Company Number: WAES 1011USA02930

PATIENT
  Age: 51 Year
  Sex: Male
  Weight: 80.7403 kg

DRUGS (1)
  1. JANUVIA [Suspect]
     Indication: DIABETES MELLITUS
     Dosage: /PO
     Route: 048
     Dates: start: 20071109, end: 20091204

REACTIONS (1)
  - PANCREATITIS [None]
